FAERS Safety Report 16530046 (Version 1)
Quarter: 2019Q3

REPORT INFORMATION
  Report Type: Spontaneous
  Country: IL (occurrence: IL)
  Receive Date: 20190704
  Receipt Date: 20190704
  Transmission Date: 20191004
  Serious: Yes (Hospitalization, Disabling)
  Sender: FDA-Public Use
  Company Number: IL-TEVA-2019-IL-1070642

PATIENT
  Age: 22 Year
  Sex: Female

DRUGS (1)
  1. CLONAZEPAM. [Suspect]
     Active Substance: CLONAZEPAM
     Dosage: TOOK TWO TABLETS
     Route: 048

REACTIONS (11)
  - Compartment syndrome [Recovering/Resolving]
  - Confusional state [Recovering/Resolving]
  - Paraparesis [Not Recovered/Not Resolved]
  - Demyelinating polyneuropathy [Recovering/Resolving]
  - Anuria [Recovering/Resolving]
  - Blood lactate dehydrogenase increased [Recovering/Resolving]
  - Depression [Recovering/Resolving]
  - Rhabdomyolysis [Recovering/Resolving]
  - Aspartate aminotransferase increased [Recovering/Resolving]
  - Platelet count increased [Recovering/Resolving]
  - Hypersomnia [Recovering/Resolving]
